FAERS Safety Report 19421247 (Version 4)
Quarter: 2022Q4

REPORT INFORMATION
  Report Type: Spontaneous
  Country: CA (occurrence: CA)
  Receive Date: 20210615
  Receipt Date: 20221125
  Transmission Date: 20230113
  Serious: Yes (Death, Hospitalization, Other)
  Sender: FDA-Public Use
  Company Number: CA-BAUSCH-BL-2021-020592

PATIENT
  Age: 44 Year
  Sex: Male

DRUGS (60)
  1. HYDROCORTISONE [Suspect]
     Active Substance: HYDROCORTISONE
     Indication: Acute lymphocytic leukaemia
     Dosage: NOT SPECIFIED
     Route: 065
  2. DEXAMETHASONE [Suspect]
     Active Substance: DEXAMETHASONE
     Indication: Acute lymphocytic leukaemia
     Dosage: NOT SPECIFIED
     Route: 065
  3. DEXAMETHASONE [Suspect]
     Active Substance: DEXAMETHASONE
     Route: 065
  4. CYCLOSPORINE [Suspect]
     Active Substance: CYCLOSPORINE
     Indication: Acute lymphocytic leukaemia
     Dosage: NOT SPECIFIED
     Route: 065
  5. CYCLOPHOSPHAMIDE [Suspect]
     Active Substance: CYCLOPHOSPHAMIDE
     Indication: Acute lymphocytic leukaemia
     Dosage: NOT SPECIFIED
     Route: 065
  6. CYCLOPHOSPHAMIDE [Suspect]
     Active Substance: CYCLOPHOSPHAMIDE
     Dosage: NOT SPECIFIED
     Route: 065
  7. CYCLOPHOSPHAMIDE [Suspect]
     Active Substance: CYCLOPHOSPHAMIDE
     Dosage: NOT SPECIFIED
     Route: 042
  8. CYTARABINE [Suspect]
     Active Substance: CYTARABINE
     Indication: Acute lymphocytic leukaemia
     Dosage: POWDER FOR SOLUTION INTRATHECAL
     Route: 037
  9. CYTARABINE [Suspect]
     Active Substance: CYTARABINE
     Route: 065
  10. DAUNORUBICIN [Suspect]
     Active Substance: DAUNORUBICIN
     Indication: Acute lymphocytic leukaemia
     Route: 042
  11. DAUNORUBICIN [Suspect]
     Active Substance: DAUNORUBICIN
     Route: 065
  12. ETOPOSIDE [Suspect]
     Active Substance: ETOPOSIDE
     Indication: Acute lymphocytic leukaemia
     Dosage: NOT SPECIFIED
     Route: 065
  13. ETOPOSIDE [Suspect]
     Active Substance: ETOPOSIDE
     Dosage: NOT SPECIFIED
     Route: 065
  14. FILGRASTIM [Suspect]
     Active Substance: FILGRASTIM
     Indication: Acute lymphocytic leukaemia
     Route: 065
  15. LEUCOVORIN CALCIUM [Suspect]
     Active Substance: LEUCOVORIN CALCIUM
     Indication: Acute lymphocytic leukaemia
     Route: 065
  16. ASPARAGINASE [Suspect]
     Active Substance: ASPARAGINASE
     Indication: Acute lymphocytic leukaemia
     Dosage: POWDER FOR SOLUTION INTRAMUSCULAR
     Route: 030
  17. MERCAPTOPURINE [Suspect]
     Active Substance: MERCAPTOPURINE
     Indication: Acute lymphocytic leukaemia
     Dosage: NOT SPECIFIED
     Route: 065
  18. MESNA [Suspect]
     Active Substance: MESNA
     Indication: Acute lymphocytic leukaemia
     Dosage: NOT SPECIFIED
     Route: 065
  19. METHOTREXATE [Suspect]
     Active Substance: METHOTREXATE
     Indication: Acute lymphocytic leukaemia
     Dosage: NOT SPECIFIED
     Route: 065
  20. METHOTREXATE [Suspect]
     Active Substance: METHOTREXATE
     Route: 037
  21. METHYLPREDNISOLONE [Suspect]
     Active Substance: METHYLPREDNISOLONE
     Indication: Acute lymphocytic leukaemia
     Route: 065
  22. ONCASPAR [Suspect]
     Active Substance: PEGASPARGASE
     Indication: Acute lymphocytic leukaemia
     Dosage: NOT SPECIFIED
     Route: 065
  23. ONCASPAR [Suspect]
     Active Substance: PEGASPARGASE
     Route: 042
  24. PREDNISONE [Suspect]
     Active Substance: PREDNISONE
     Indication: Acute lymphocytic leukaemia
     Dosage: NOT SPECIFIED
     Route: 065
  25. VINCRISTINE SULFATE [Suspect]
     Active Substance: VINCRISTINE SULFATE
     Indication: Acute lymphocytic leukaemia
     Dosage: NOT SPECIFIED
     Route: 065
  26. ALLOPURINOL [Suspect]
     Active Substance: ALLOPURINOL
     Indication: Acute lymphocytic leukaemia
     Route: 065
  27. ALLOPURINOL [Suspect]
     Active Substance: ALLOPURINOL
     Indication: Product used for unknown indication
     Dosage: 5 IN 1 DAY
     Route: 065
  28. CEFAZOLIN [Suspect]
     Active Substance: CEFAZOLIN
     Indication: Product used for unknown indication
     Route: 065
  29. CEFAZOLIN [Suspect]
     Active Substance: CEFAZOLIN
     Indication: Acute lymphocytic leukaemia
  30. CHOLECALCIFEROL [Suspect]
     Active Substance: CHOLECALCIFEROL
     Indication: Product used for unknown indication
     Dosage: NOT SPECIFIED
     Route: 065
  31. CHOLECALCIFEROL [Suspect]
     Active Substance: CHOLECALCIFEROL
     Indication: Acute lymphocytic leukaemia
  32. FASTURTEC [Suspect]
     Active Substance: RASBURICASE
     Indication: Acute lymphocytic leukaemia
     Dosage: POWDER FOR SOLUTION INTRAVENOUS
     Route: 042
  33. FASTURTEC [Suspect]
     Active Substance: RASBURICASE
     Indication: Product used for unknown indication
     Route: 065
  34. FUROSEMIDE [Suspect]
     Active Substance: FUROSEMIDE
     Indication: Acute lymphocytic leukaemia
     Dosage: NOT SPECIFIED
     Route: 065
  35. FUROSEMIDE [Suspect]
     Active Substance: FUROSEMIDE
     Indication: Product used for unknown indication
  36. MYCAMINE [Suspect]
     Active Substance: MICAFUNGIN SODIUM
     Indication: Acute lymphocytic leukaemia
     Dosage: POWDER FOR SOLUTION INTRAVENOUS
     Route: 042
  37. MYCAMINE [Suspect]
     Active Substance: MICAFUNGIN SODIUM
     Indication: Product used for unknown indication
     Route: 065
  38. ONDANSETRON [Suspect]
     Active Substance: ONDANSETRON
     Indication: Acute lymphocytic leukaemia
     Dosage: NOT SPECIFIED
     Route: 065
  39. ONDANSETRON [Suspect]
     Active Substance: ONDANSETRON
     Indication: Product used for unknown indication
  40. POTASSIUM [Suspect]
     Active Substance: POTASSIUM
     Indication: Acute lymphocytic leukaemia
     Dosage: NOT SPECIFIED
     Route: 065
  41. POTASSIUM [Suspect]
     Active Substance: POTASSIUM
     Indication: Product used for unknown indication
  42. ZINECARD [Suspect]
     Active Substance: DEXRAZOXANE HYDROCHLORIDE
     Indication: Acute lymphocytic leukaemia
     Route: 065
  43. ZINECARD [Suspect]
     Active Substance: DEXRAZOXANE HYDROCHLORIDE
     Indication: Product used for unknown indication
     Dosage: POWDER FOR SOLUTION INTRAVENOUS
     Route: 042
  44. METOCLOPRAMIDE HYDROCHLORIDE [Suspect]
     Active Substance: METOCLOPRAMIDE HYDROCHLORIDE
     Indication: Acute lymphocytic leukaemia
     Route: 065
  45. CYCLOSPORINE [Suspect]
     Active Substance: CYCLOSPORINE
     Indication: Acute lymphocytic leukaemia
     Dosage: NOT SPECIFIED
     Route: 065
  46. DAUNORUBICIN [Suspect]
     Active Substance: DAUNORUBICIN
     Indication: Acute lymphocytic leukaemia
     Route: 065
  47. DAUNORUBICIN [Suspect]
     Active Substance: DAUNORUBICIN
     Route: 065
  48. DAUNORUBICIN HYDROCHLORIDE [Suspect]
     Active Substance: DAUNORUBICIN HYDROCHLORIDE
     Indication: Acute lymphocytic leukaemia
     Route: 042
  49. VITAMIN D3 [Suspect]
     Active Substance: CHOLECALCIFEROL
     Indication: Product used for unknown indication
     Route: 065
  50. VITAMIN D3 [Suspect]
     Active Substance: CHOLECALCIFEROL
     Route: 065
  51. ALLOPURINOL [Concomitant]
     Active Substance: ALLOPURINOL
     Indication: Product used for unknown indication
  52. CEFAZOLIN [Concomitant]
     Active Substance: CEFAZOLIN
     Indication: Product used for unknown indication
  53. CHOLECALCIFEROL [Concomitant]
     Active Substance: CHOLECALCIFEROL
     Indication: Product used for unknown indication
  54. FASTURTEC [Concomitant]
     Active Substance: RASBURICASE
     Indication: Product used for unknown indication
  55. FUROSEMIDE [Concomitant]
     Active Substance: FUROSEMIDE
     Indication: Product used for unknown indication
  56. METOCLOPRAMIDE [Concomitant]
     Active Substance: METOCLOPRAMIDE
     Indication: Product used for unknown indication
  57. MYCAMINE [Concomitant]
     Active Substance: MICAFUNGIN SODIUM
     Indication: Product used for unknown indication
  58. ONDANSETRON [Concomitant]
     Active Substance: ONDANSETRON
     Indication: Product used for unknown indication
  59. POTASSIUM [Concomitant]
     Active Substance: POTASSIUM
     Indication: Product used for unknown indication
  60. ZINECARD [Concomitant]
     Active Substance: DEXRAZOXANE HYDROCHLORIDE
     Indication: Product used for unknown indication

REACTIONS (10)
  - Clostridium difficile colitis [Fatal]
  - Bacterial infection [Fatal]
  - Cellulitis [Fatal]
  - Cytomegalovirus viraemia [Fatal]
  - Disseminated aspergillosis [Fatal]
  - Fungal infection [Fatal]
  - Lymphoid tissue hypoplasia [Fatal]
  - Lymphopenia [Fatal]
  - Thymus hypoplasia [Fatal]
  - Product use in unapproved indication [Unknown]
